FAERS Safety Report 16736697 (Version 11)
Quarter: 2021Q1

REPORT INFORMATION
  Report Type: Report from Study
  Country: US (occurrence: US)
  Receive Date: 20190823
  Receipt Date: 20210308
  Transmission Date: 20210419
  Serious: Yes (Other)
  Sender: FDA-Public Use
  Company Number: PHEH2019US035028

PATIENT
  Age: 48 Year
  Sex: Female

DRUGS (3)
  1. MAYZENT [Suspect]
     Active Substance: SIPONIMOD
     Indication: RELAPSING-REMITTING MULTIPLE SCLEROSIS
     Dosage: 2 MG/KG, QMO
     Route: 048
  2. MAYZENT [Suspect]
     Active Substance: SIPONIMOD
     Indication: SECONDARY PROGRESSIVE MULTIPLE SCLEROSIS
  3. MAYZENT [Suspect]
     Active Substance: SIPONIMOD
     Indication: CLINICALLY ISOLATED SYNDROME
     Dosage: 2 MG, QD
     Route: 048
     Dates: start: 20190710

REACTIONS (12)
  - Memory impairment [Unknown]
  - Visual impairment [Not Recovered/Not Resolved]
  - Weight decreased [Unknown]
  - Asthenia [Unknown]
  - Gait disturbance [Unknown]
  - Malaise [Recovering/Resolving]
  - Cataract [Not Recovered/Not Resolved]
  - Muscular weakness [Not Recovered/Not Resolved]
  - Product dose omission issue [Recovering/Resolving]
  - Product primary packaging issue [Not Recovered/Not Resolved]
  - Insomnia [Not Recovered/Not Resolved]
  - Fatigue [Recovering/Resolving]

NARRATIVE: CASE EVENT DATE: 20190707
